FAERS Safety Report 5017386-X (Version None)
Quarter: 2006Q2

REPORT INFORMATION
  Report Type: 
  Country: None (occurrence: None)
  Receive Date: 20060526
  Receipt Date: 20060511
  Transmission Date: 20061013
  Serious: Yes (Other)
  Sender: FDA-Public Use
  Company Number: 2006BH009842

PATIENT

DRUGS (2)
  1. TAZICEF (CEFTAZIDIME SODIUM INJECTION) (CEFTAZIDIME) [Suspect]
     Indication: OTITIS MEDIA
  2. GENTAMICIN [Suspect]
     Dosage: U

REACTIONS (2)
  - ADVERSE DRUG REACTION [None]
  - NEUTROPENIA [None]
